FAERS Safety Report 5084806-4 (Version None)
Quarter: 2006Q3

REPORT INFORMATION
  Report Type: 
  Country: None (occurrence: None)
  Receive Date: 20060815
  Receipt Date: 20060731
  Transmission Date: 20061208
  Serious: Yes (Death)
  Sender: FDA-Public Use
  Company Number: BR-2006-021174

PATIENT
  Age: 47 Year
  Sex: Male

DRUGS (1)
  1. BETAFERON (INTERFERON BETA - 1 B  INJECTION) INJECTION, 250?G [Suspect]
     Indication: MULTIPLE SCLEROSIS
     Dosage: 8 MIU, SUBCUTANEOUS
     Route: 058
     Dates: start: 20000101, end: 20060720

REACTIONS (1)
  - MYOCARDIAL INFARCTION [None]
